FAERS Safety Report 11077981 (Version 1)
Quarter: 2015Q2

REPORT INFORMATION
  Report Type: Spontaneous
  Country: US (occurrence: None)
  Receive Date: 20150429
  Receipt Date: 20150429
  Transmission Date: 20150821
  Serious: Yes (Other)
  Sender: FDA-Public Use
  Company Number: None

PATIENT
  Age: 88 Year
  Sex: Female
  Weight: 54.43 kg

DRUGS (6)
  1. LOSARTAN [Concomitant]
     Active Substance: LOSARTAN
  2. TYLENOL [Concomitant]
     Active Substance: ACETAMINOPHEN
  3. ATENOLOL. [Concomitant]
     Active Substance: ATENOLOL
  4. EQUATE COMPLETE MULTIVIATMIN OSCAL [Concomitant]
  5. LOTEMAX [Suspect]
     Active Substance: LOTEPREDNOL ETABONATE
     Indication: DRY EYE
     Dosage: GEL 0.5%, 59, ONCE DAILY, DROP IN EACH EYE
     Dates: start: 20141126, end: 20141227
  6. ASPIRIN. [Concomitant]
     Active Substance: ASPIRIN

REACTIONS (2)
  - Vision blurred [None]
  - Visual acuity reduced [None]

NARRATIVE: CASE EVENT DATE: 20141227
